FAERS Safety Report 17992452 (Version 2)
Quarter: 2020Q3

REPORT INFORMATION
  Report Type: Spontaneous
  Country: BE (occurrence: BE)
  Receive Date: 20200708
  Receipt Date: 20200911
  Transmission Date: 20201103
  Serious: Yes (Other)
  Sender: FDA-Public Use
  Company Number: BE-ROCHE-2636946

PATIENT
  Sex: Female
  Weight: 95 kg

DRUGS (5)
  1. OCREVUS [Suspect]
     Active Substance: OCRELIZUMAB
     Indication: RELAPSING-REMITTING MULTIPLE SCLEROSIS
     Dosage: SECOND DOSE: 18?JUN?2020, DISCONTINUED
     Route: 042
     Dates: start: 20200604, end: 20200619
  2. PREGABALINE [Concomitant]
     Active Substance: PREGABALIN
     Indication: NEURALGIA
  3. PREGABALIN. [Concomitant]
     Active Substance: PREGABALIN
     Indication: NEURALGIA
  4. GABAPENTINE [Concomitant]
     Active Substance: GABAPENTIN
     Indication: NEURALGIA
  5. CYMBALTA [Concomitant]
     Active Substance: DULOXETINE HYDROCHLORIDE
     Indication: DEPRESSION

REACTIONS (2)
  - Streptococcal sepsis [Recovering/Resolving]
  - Liver abscess [Recovered/Resolved]

NARRATIVE: CASE EVENT DATE: 20200629
